FAERS Safety Report 10433204 (Version 1)
Quarter: 2014Q3

REPORT INFORMATION
  Report Type: Spontaneous
  Country: US (occurrence: None)
  Receive Date: 20140815
  Receipt Date: 20140815
  Transmission Date: 20150326
  Serious: No
  Sender: FDA-Public Use
  Company Number: A-US2014-101784

PATIENT
  Age: 52 Year
  Sex: Female

DRUGS (2)
  1. OPSUMIT [Suspect]
     Active Substance: MACITENTAN
     Indication: PORTAL HYPERTENSION
     Route: 048
     Dates: start: 20140416
  2. VENTAVIS [Suspect]
     Active Substance: ILOPROST
     Indication: PORTAL HYPERTENSION
     Dosage: , 6 TO 9 TIMES DAILY, RESPIRATORY
     Dates: start: 20050711

REACTIONS (2)
  - Drug dose omission [None]
  - Dyspnoea [None]
